FAERS Safety Report 6425207-3 (Version None)
Quarter: 2009Q4

REPORT INFORMATION
  Report Type: 
  Country: None (occurrence: None)
  Receive Date: 20091103
  Receipt Date: 20091028
  Transmission Date: 20100525
  Serious: Yes (Hospitalization)
  Sender: FDA-Public Use
  Company Number: FR-BRISTOL-MYERS SQUIBB COMPANY-14729743

PATIENT
  Age: 59 Year
  Sex: Female
  Weight: 54 kg

DRUGS (6)
  1. CETUXIMAB [Suspect]
     Indication: ANAL CANCER
     Dosage: DOSE REDUCED BY 50%, RECENT INFUSION ON 13JUL09.
     Route: 042
     Dates: start: 20090630
  2. CISPLATIN [Suspect]
     Indication: ANAL CANCER
     Dosage: DOSE REDUCED TO 40MG/MME2
     Route: 042
     Dates: start: 20090708
  3. FLUOROURACIL [Suspect]
     Indication: ANAL CANCER
     Dosage: DOSE REDUCED BY 25%. RECENT INFUSION ON 10JUL09.
     Route: 042
     Dates: start: 20090707
  4. RADIATION THERAPY [Suspect]
     Indication: ANAL CANCER
     Dosage: 1 DF=1.8 GY, RECENT INFUSION ON 17JUL09. RESTARTED ON 31JUL09.INTERRUPTED FOR 12DAYS.
     Dates: start: 20090707
  5. STABLON [Concomitant]
     Indication: DEPRESSION
     Route: 048
  6. LEXOMIL [Concomitant]
     Indication: DEPRESSION
     Route: 048

REACTIONS (2)
  - DIARRHOEA [None]
  - FEBRILE BONE MARROW APLASIA [None]
